FAERS Safety Report 4347984-8 (Version None)
Quarter: 2004Q1

REPORT INFORMATION
  Report Type: 
  Country: None (occurrence: None)
  Receive Date: 20040325
  Receipt Date: 20031202
  Transmission Date: 20041129
  Serious: No
  Sender: FDA-Public Use
  Company Number: USA021225318

PATIENT
  Age: 50 Year
  Sex: Female
  Weight: 48 kg

DRUGS (5)
  1. FORTEO [Suspect]
     Indication: OSTEOPOROSIS
     Dosage: 20 UG/DAY
     Dates: start: 20021220, end: 20030801
  2. LEXAPRO [Concomitant]
  3. TOPROL-XL [Concomitant]
  4. CLIMARA [Concomitant]
  5. FLONASE [Concomitant]

REACTIONS (3)
  - BONE MARROW DEPRESSION [None]
  - DIZZINESS [None]
  - HEART RATE INCREASED [None]
